FAERS Safety Report 15143638 (Version 2)
Quarter: 2018Q3

REPORT INFORMATION
  Report Type: Report from Study
  Country: NL (occurrence: NL)
  Receive Date: 20180713
  Receipt Date: 20180720
  Transmission Date: 20181010
  Serious: Yes (Hospitalization)
  Sender: FDA-Public Use
  Company Number: NL-PFIZER INC-2018272869

PATIENT
  Age: 57 Year
  Sex: Male
  Weight: 62 kg

DRUGS (8)
  1. SPIRONOLACTON [Concomitant]
     Active Substance: SPIRONOLACTONE
     Dosage: 25 MG, 2X/DAY
     Route: 048
     Dates: start: 20180607
  2. AVELUMAB [Suspect]
     Active Substance: AVELUMAB
     Indication: RENAL CELL CARCINOMA
     Dosage: 673 MG, EVERY 2 WEEKS
     Route: 042
     Dates: start: 20170323
  3. METOPROLOLSUCCINAAT [Concomitant]
     Active Substance: METOPROLOL SUCCINATE
     Dosage: 25 MG, 1X/DAY
     Route: 048
     Dates: start: 20180503
  4. LOPERAMIDE [Concomitant]
     Active Substance: LOPERAMIDE
     Indication: DIARRHOEA
     Dosage: 2 MG, 1X/DAY (AS NEEDED)
     Route: 048
     Dates: start: 20170612
  5. KALIUMCHLORIDE [Concomitant]
     Dosage: 600 MG, 2X/DAY
     Route: 048
  6. AXITINIB [Suspect]
     Active Substance: AXITINIB
     Indication: RENAL CELL CARCINOMA
     Dosage: 5 MG, 2X/WEEK
     Route: 048
     Dates: start: 20170323
  7. PARACETAMOL [Concomitant]
     Active Substance: ACETAMINOPHEN
     Dosage: 1000 MG, AS NEEDED
     Route: 048
     Dates: start: 20180308
  8. ALGELDRATE W/MAGNESIUM HYDROXIDE [Concomitant]
     Dosage: 200/400 MG, 4X/DAY (AS NEEDED)
     Route: 048
     Dates: start: 20171130

REACTIONS (1)
  - Dehydration [Recovered/Resolved]

NARRATIVE: CASE EVENT DATE: 20180704
